FAERS Safety Report 9977920 (Version 1)
Quarter: 2014Q1

REPORT INFORMATION
  Report Type: Report from Study
  Country: PR (occurrence: PR)
  Receive Date: 20140306
  Receipt Date: 20140306
  Transmission Date: 20141002
  Serious: No
  Sender: FDA-Public Use
  Company Number: PR-ABBVIE-13P-131-1163519-00

PATIENT
  Sex: Female
  Weight: 64.01 kg

DRUGS (6)
  1. HUMIRA [Suspect]
     Indication: PSORIASIS
     Route: 058
     Dates: start: 201305, end: 20131009
  2. NORVASC [Concomitant]
     Indication: HYPERTENSION
     Route: 048
  3. OXIGEN [Concomitant]
     Indication: SLEEP APNOEA SYNDROME
  4. LOSARTAN [Concomitant]
     Indication: HYPERTENSION
     Route: 048
  5. LOSARTAN W/ DIURETIC [Concomitant]
     Indication: BLOOD PRESSURE INCREASED
     Route: 048
  6. ADVAIR [Concomitant]
     Indication: ASTHMA

REACTIONS (6)
  - Dysphonia [Unknown]
  - Pyrexia [Unknown]
  - Myalgia [Unknown]
  - Pain [Unknown]
  - Upper-airway cough syndrome [Unknown]
  - Increased upper airway secretion [Unknown]
